FAERS Safety Report 9648922 (Version 6)
Quarter: 2014Q1

REPORT INFORMATION
  Report Type: Spontaneous
  Country: JP (occurrence: JP)
  Receive Date: 20131028
  Receipt Date: 20140310
  Transmission Date: 20141002
  Serious: Yes (Death, Life-Threatening, Hospitalization, Other)
  Sender: FDA-Public Use
  Company Number: JP-ASTRAZENECA-2013SE78790

PATIENT
  Age: 87 Year
  Sex: Male
  Weight: 56 kg

DRUGS (8)
  1. ZOLADEX [Suspect]
     Indication: PROSTATE CANCER
     Route: 058
     Dates: start: 20130729, end: 20130927
  2. CASODEX [Suspect]
     Indication: PROSTATE CANCER
     Route: 048
     Dates: start: 20130709, end: 20131023
  3. TANATRIL [Concomitant]
     Indication: HYPERTENSION
     Route: 048
     Dates: end: 20131020
  4. PERSANTIN [Concomitant]
     Indication: HYPERTENSION
     Route: 048
     Dates: end: 20131020
  5. MUCOSOLVAN [Concomitant]
     Indication: NASOPHARYNGITIS
     Route: 048
     Dates: start: 20131018, end: 20131020
  6. HARNAL [Concomitant]
     Indication: BENIGN PROSTATIC HYPERPLASIA
  7. MEDICON [Concomitant]
     Indication: NASOPHARYNGITIS
     Route: 048
     Dates: start: 20131018, end: 20131020
  8. CIPROXAN [Concomitant]
     Indication: NASOPHARYNGITIS
     Route: 048
     Dates: start: 20131018, end: 20131020

REACTIONS (4)
  - Multi-organ failure [Fatal]
  - Malignant neoplasm progression [Unknown]
  - Interstitial lung disease [Fatal]
  - Therapy cessation [Unknown]
